FAERS Safety Report 8574846-2 (Version None)
Quarter: 2012Q3

REPORT INFORMATION
  Report Type: 
  Country: None (occurrence: None)
  Receive Date: 20120807
  Receipt Date: 20120706
  Transmission Date: 20120928
  Serious: No
  Sender: FDA-Public Use
  Company Number: US-009507513-1207USA004714

PATIENT

DRUGS (8)
  1. PEG-INTRON [Concomitant]
     Dosage: 150 MICROGRAM, UNK
     Route: 058
  2. PRILOSEC [Concomitant]
     Dosage: 20 MG, UNK
     Route: 048
  3. VICTRELIS [Suspect]
     Dosage: 800 MG, TID
     Route: 048
  4. RIBAVIRIN [Concomitant]
     Dosage: 1200 PER DAY
     Route: 048
  5. MULTI TABS [Concomitant]
  6. VITAMIN B (UNSPECIFIED) [Concomitant]
     Dosage: 100 MICROGRAM, UNK
     Route: 048
  7. PROBIOTICA [Concomitant]
     Route: 048
  8. PROCRIT [Concomitant]
     Dosage: 40000 ML, UNK
     Route: 058

REACTIONS (3)
  - CHEST DISCOMFORT [None]
  - DIZZINESS [None]
  - NAUSEA [None]
